FAERS Safety Report 4343549-2 (Version None)
Quarter: 2004Q2

REPORT INFORMATION
  Report Type: 
  Country: None (occurrence: None)
  Receive Date: 20040419
  Receipt Date: 20040407
  Transmission Date: 20050107
  Serious: Yes (Other)
  Sender: FDA-Public Use
  Company Number: S04-USA-01892-01

PATIENT
  Age: 21 Year
  Sex: Male

DRUGS (1)
  1. LEXAPRO [Suspect]
     Indication: SOCIAL PHOBIA
     Dosage: 10 MG QD PO
     Route: 048

REACTIONS (1)
  - ATRIAL FIBRILLATION [None]
